FAERS Safety Report 16118038 (Version 4)
Quarter: 2020Q3

REPORT INFORMATION
  Report Type: Spontaneous
  Country: US (occurrence: US)
  Receive Date: 20190326
  Receipt Date: 20200812
  Transmission Date: 20201102
  Serious: No
  Sender: FDA-Public Use
  Company Number: US-VERTEX PHARMACEUTICALS-2019-002541

PATIENT
  Age: 77 Year
  Sex: Male
  Weight: 97 kg

DRUGS (1)
  1. SYMDEKO [Suspect]
     Active Substance: IVACAFTOR\TEZACAFTOR
     Indication: CYSTIC FIBROSIS
     Dosage: 100MG TEZACAFTOR/150MG IVACAFTOR (YELLOW), AM; 150MG IVACAFTOR (BLUE), PM
     Route: 048
     Dates: start: 20180227

REACTIONS (4)
  - Weight increased [Not Recovered/Not Resolved]
  - Increased appetite [Unknown]
  - Haemoptysis [Recovered/Resolved]
  - H1N1 influenza [Unknown]

NARRATIVE: CASE EVENT DATE: 20200307
